FAERS Safety Report 9270535 (Version 1)
Quarter: 2013Q2

REPORT INFORMATION
  Report Type: Report from Study
  Country: US (occurrence: US)
  Receive Date: 20130503
  Receipt Date: 20130503
  Transmission Date: 20140414
  Serious: Yes (Hospitalization, Other)
  Sender: FDA-Public Use
  Company Number: US-MERCK-1304USA015423

PATIENT
  Age: 78 Year
  Sex: Male

DRUGS (13)
  1. NASONEX [Suspect]
     Indication: RHINITIS
     Route: 045
  2. STUDY DRUG (UNSPECIFIED) [Suspect]
     Indication: TYPE 2 DIABETES MELLITUS
     Dosage: SAXAGLIPTIN OR PLACEBO
     Dates: start: 20100611, end: 20111219
  3. HUMALOG [Suspect]
     Indication: TYPE 2 DIABETES MELLITUS
     Dosage: UNK
  4. LANTUS [Suspect]
     Indication: TYPE 2 DIABETES MELLITUS
  5. TERAZOSIN HYDROCHLORIDE [Concomitant]
     Dosage: UNK
     Dates: start: 20110912
  6. FERROUS SULFATE [Concomitant]
     Dosage: UNK
     Dates: start: 20120329
  7. METOPROLOL [Concomitant]
     Dosage: UNK
     Dates: start: 20120317
  8. FUROSEMIDE [Concomitant]
     Dosage: UNK
     Dates: start: 20120317
  9. ASPIRIN [Concomitant]
  10. STATIN (NYSTATIN) [Concomitant]
  11. [THERAPY UNSPECIFIED] [Concomitant]
  12. ANGIOTENSIN AMIDE [Concomitant]
  13. DIURETIC (UNSPECIFIED) [Concomitant]

REACTIONS (13)
  - Oesophageal candidiasis [Recovering/Resolving]
  - Mental impairment [Unknown]
  - Hyperkeratosis [Unknown]
  - Cardiac failure congestive [Unknown]
  - Pain in extremity [Unknown]
  - Cough [Unknown]
  - Dyspnoea [Unknown]
  - Local swelling [Unknown]
  - Renal impairment [Unknown]
  - Dizziness [Unknown]
  - Iron deficiency anaemia [Unknown]
  - Cough [Unknown]
  - Hyperglycaemia [Unknown]
